FAERS Safety Report 7987273-3 (Version None)
Quarter: 2011Q4

REPORT INFORMATION
  Report Type: 
  Country: None (occurrence: None)
  Receive Date: 20111216
  Receipt Date: 20110328
  Transmission Date: 20120403
  Serious: No
  Sender: FDA-Public Use
  Company Number: US-BRISTOL-MYERS SQUIBB COMPANY-15642580

PATIENT
  Age: 70 Year
  Sex: Male

DRUGS (4)
  1. KLONOPIN [Concomitant]
     Dosage: DURATION OF THERAPY:SEVERAL YRS
  2. ABILIFY [Suspect]
     Indication: DEPRESSION
     Dosage: 1DF=ABOUT 30 UNITS NOS
     Route: 048
     Dates: start: 20110201
  3. ABILIFY [Suspect]
     Indication: OBSESSIVE-COMPULSIVE DISORDER
     Dosage: 1DF=ABOUT 30 UNITS NOS
     Route: 048
     Dates: start: 20110201
  4. HYTRIN [Concomitant]

REACTIONS (3)
  - ABNORMAL DREAMS [None]
  - URINARY INCONTINENCE [None]
  - URINARY RETENTION [None]
